FAERS Safety Report 20675918 (Version 2)
Quarter: 2022Q2

REPORT INFORMATION
  Report Type: Report from Study
  Country: FR (occurrence: FR)
  Receive Date: 20220405
  Receipt Date: 20220422
  Transmission Date: 20220720
  Serious: Yes (Life-Threatening, Hospitalization)
  Sender: FDA-Public Use
  Company Number: FR-ABBVIE-22P-056-4336918-00

PATIENT
  Age: 70 Year
  Sex: Male
  Weight: 84 kg

DRUGS (14)
  1. VENETOCLAX [Suspect]
     Active Substance: VENETOCLAX
     Indication: Myelodysplastic syndrome
     Dosage: THE FIRST 14 DAYS IN EACH 28 DAY CYCLE
     Route: 048
     Dates: start: 20210816, end: 20220313
  2. AZACITIDINE [Suspect]
     Active Substance: AZACITIDINE
     Indication: Myelodysplastic syndrome
     Dosage: ON 7 DAYS WITHIN THE FIRST 9 CALENDAR DAYS PER 28-DAY CYCLE
     Route: 058
     Dates: start: 20210816, end: 20220308
  3. VALACYCLOVIR HYDROCHLORIDE [Concomitant]
     Active Substance: VALACYCLOVIR HYDROCHLORIDE
     Indication: Infection prophylaxis
     Route: 048
     Dates: start: 2020
  4. LEUCOVORIN CALCIUM [Concomitant]
     Active Substance: LEUCOVORIN CALCIUM
     Indication: Infection prophylaxis
     Route: 048
     Dates: start: 2020
  5. FLUVASTATIN [Concomitant]
     Active Substance: FLUVASTATIN SODIUM
     Indication: Coronary artery disease
     Route: 048
     Dates: start: 2017
  6. DEFERASIROX [Concomitant]
     Active Substance: DEFERASIROX
     Indication: Prophylaxis
     Route: 048
  7. EXJADE [Concomitant]
     Active Substance: DEFERASIROX
     Indication: Prophylaxis
     Route: 048
  8. POSACONAZOLE [Concomitant]
     Active Substance: POSACONAZOLE
     Indication: Infection prophylaxis
     Route: 048
     Dates: start: 20210917, end: 20210917
  9. POSACONAZOLE [Concomitant]
     Active Substance: POSACONAZOLE
     Route: 048
     Dates: start: 20210918
  10. PENICILLIN V [Concomitant]
     Active Substance: PENICILLIN V
     Indication: Infection prophylaxis
     Dosage: 1 MIU
     Route: 048
     Dates: start: 20211026
  11. ATOVAQUONE [Concomitant]
     Active Substance: ATOVAQUONE
     Indication: Infection prophylaxis
     Dosage: 2 CAM
     Route: 048
     Dates: start: 20211026
  12. AMOXICILLIN [Concomitant]
     Active Substance: AMOXICILLIN
     Indication: Sepsis
     Route: 048
     Dates: start: 20220320, end: 20220328
  13. CLAVULANIC ACID [Concomitant]
     Active Substance: CLAVULANIC ACID
     Indication: Sepsis
     Route: 048
     Dates: start: 20220320, end: 20220328
  14. CIPROFLOXACIN [Concomitant]
     Active Substance: CIPROFLOXACIN
     Indication: Sepsis
     Route: 048
     Dates: start: 20220320, end: 20220328

REACTIONS (1)
  - Sepsis [Recovered/Resolved]

NARRATIVE: CASE EVENT DATE: 20220324
